FAERS Safety Report 15000235 (Version 5)
Quarter: 2018Q3

REPORT INFORMATION
  Report Type: Spontaneous
  Country: BR (occurrence: BR)
  Receive Date: 20180612
  Receipt Date: 20180828
  Transmission Date: 20181010
  Serious: Yes (Hospitalization)
  Sender: FDA-Public Use
  Company Number: BR-GLAXOSMITHKLINE-BR2017GSK040843

PATIENT
  Sex: Female
  Weight: 81 kg

DRUGS (3)
  1. BENLYSTA [Suspect]
     Active Substance: BELIMUMAB
     Indication: SYSTEMIC LUPUS ERYTHEMATOSUS
     Dosage: 600 MG, UNK
     Dates: start: 20170310
  2. CHLOROQUINE. [Concomitant]
     Active Substance: CHLOROQUINE
     Indication: PRODUCT USED FOR UNKNOWN INDICATION
     Dosage: UNK
  3. HYDROXYCHLOROQUINE SULFATE. [Concomitant]
     Active Substance: HYDROXYCHLOROQUINE SULFATE
     Indication: PRODUCT USED FOR UNKNOWN INDICATION
     Dosage: UNK

REACTIONS (15)
  - Spleen disorder [Unknown]
  - Abdominal distension [Unknown]
  - Circumstance or information capable of leading to medication error [Recovered/Resolved]
  - Drug dose omission [Not Recovered/Not Resolved]
  - Headache [Unknown]
  - Fatigue [Unknown]
  - Pain in extremity [Unknown]
  - Urinary tract infection [Recovering/Resolving]
  - Fluid retention [Unknown]
  - Peripheral swelling [Unknown]
  - Underdose [Recovered/Resolved]
  - Weight increased [Not Recovered/Not Resolved]
  - Mental disorder [Recovered/Resolved]
  - Oesophageal pain [Unknown]
  - Inappropriate schedule of drug administration [Recovered/Resolved]
